FAERS Safety Report 5564648-3 (Version None)
Quarter: 2007Q4

REPORT INFORMATION
  Report Type: 
  Country: None (occurrence: None)
  Receive Date: 20071212
  Receipt Date: 20071127
  Transmission Date: 20080405
  Serious: Yes (Disabling)
  Sender: FDA-Public Use
  Company Number: PHBS2007JP20109

PATIENT
  Age: 81 Year
  Sex: Male

DRUGS (1)
  1. VISUDYNE [Suspect]
     Indication: MACULAR DEGENERATION
     Dates: start: 20061222, end: 20061222

REACTIONS (3)
  - DETACHMENT OF RETINAL PIGMENT EPITHELIUM [None]
  - DISEASE PROGRESSION [None]
  - VISUAL ACUITY REDUCED [None]
